FAERS Safety Report 4951955-8 (Version None)
Quarter: 2006Q1

REPORT INFORMATION
  Report Type: 
  Country: None (occurrence: None)
  Receive Date: 20060323
  Receipt Date: 20060316
  Transmission Date: 20060701
  Serious: Yes (Life-Threatening, Hospitalization)
  Sender: FDA-Public Use
  Company Number: AU-ROCHE-440789

PATIENT
  Age: 70 Year
  Sex: Male

DRUGS (3)
  1. CEFTRIAXONE SODIUM [Suspect]
     Indication: EMPYEMA
     Route: 042
     Dates: start: 20050809, end: 20050809
  2. SAW PALMETTO [Concomitant]
     Dosage: REPORTED: 1,0 DOSE UNSPECIFIED.
     Route: 048
  3. OMEPRAZOLE [Concomitant]
     Route: 048

REACTIONS (4)
  - DYSPNOEA [None]
  - FLUSHING [None]
  - HYPOTENSION [None]
  - SNEEZING [None]
